FAERS Safety Report 15934884 (Version 1)
Quarter: 2019Q1

REPORT INFORMATION
  Report Type: Spontaneous
  Country: SI (occurrence: SI)
  Receive Date: 20190207
  Receipt Date: 20190207
  Transmission Date: 20190417
  Serious: Yes (Death)
  Sender: FDA-Public Use
  Company Number: SI-CELGENEUS-SVN-20190200053

PATIENT
  Age: 79 Year
  Sex: Male

DRUGS (2)
  1. VIDAZA [Suspect]
     Active Substance: AZACITIDINE
     Indication: ACUTE MYELOID LEUKAEMIA
     Route: 065
     Dates: start: 2012, end: 201212
  2. VIDAZA [Suspect]
     Active Substance: AZACITIDINE
     Route: 065

REACTIONS (3)
  - Death [Fatal]
  - Acute myeloid leukaemia recurrent [Unknown]
  - Acute myeloid leukaemia recurrent [Unknown]

NARRATIVE: CASE EVENT DATE: 201302
